FAERS Safety Report 5840006-9 (Version None)
Quarter: 2008Q3

REPORT INFORMATION
  Report Type: 
  Country: None (occurrence: None)
  Receive Date: 20080811
  Receipt Date: 20080731
  Transmission Date: 20090109
  Serious: Yes (Hospitalization, Other)
  Sender: FDA-Public Use
  Company Number: US-NOVOPROD-277969

PATIENT
  Sex: Male
  Weight: 121 kg

DRUGS (12)
  1. NOVOLOG [Suspect]
     Indication: DIABETES MELLITUS
     Dosage: SLIDING SCALE
     Route: 058
  2. LANTUS [Suspect]
     Indication: DIABETES MELLITUS
     Dosage: 60 IU HS
     Route: 058
  3. FUROSEMIDE [Concomitant]
     Indication: DRUG USE FOR UNKNOWN INDICATION
     Dosage: 80 MG, QD
     Route: 048
  4. KLOR-CON [Concomitant]
     Indication: DRUG USE FOR UNKNOWN INDICATION
     Dosage: 10 MG, UNK
  5. ASPIRIN [Concomitant]
     Indication: DRUG USE FOR UNKNOWN INDICATION
     Dosage: 81 MG, QD
     Route: 048
  6. SPIRONOLACTONE [Concomitant]
     Indication: DRUG USE FOR UNKNOWN INDICATION
     Dosage: 1 TABLET BID
     Route: 048
  7. CRESTOR [Concomitant]
     Indication: DRUG USE FOR UNKNOWN INDICATION
     Dosage: 20 MG, QD
  8. LYRICA [Concomitant]
     Indication: DRUG USE FOR UNKNOWN INDICATION
     Dosage: 100 MG, QD
     Route: 048
  9. METOPROLOL SUCCINATE [Concomitant]
     Indication: DRUG USE FOR UNKNOWN INDICATION
     Dosage: 100 MG, BID
     Route: 048
  10. GEODON                             /01487002/ [Concomitant]
     Indication: DRUG USE FOR UNKNOWN INDICATION
     Dosage: 60 MG, QD
     Route: 048
  11. LBS 2 [Concomitant]
     Indication: BOWEL MOVEMENT IRREGULARITY
     Dosage: UNK, BID
  12. SENNOSIDE A+B [Concomitant]
     Indication: LAXATIVE SUPPORTIVE CARE

REACTIONS (4)
  - BLOOD GLUCOSE INCREASED [None]
  - CARDIAC FAILURE CONGESTIVE [None]
  - FLUID RETENTION [None]
  - WEIGHT INCREASED [None]
